FAERS Safety Report 16870376 (Version 1)
Quarter: 2019Q3

REPORT INFORMATION
  Report Type: Other
  Country: ES (occurrence: ES)
  Receive Date: 20190930
  Receipt Date: 20190930
  Transmission Date: 20191005
  Serious: Yes (Other)
  Sender: FDA-Public Use
  Company Number: ES-VALIDUS PHARMACEUTICALS LLC-ES-2019VAL000554

PATIENT

DRUGS (6)
  1. FUROSEMIDE. [Suspect]
     Active Substance: FUROSEMIDE
     Indication: POLYURIA
     Dosage: 20 MG, EVERY 12 HOURS
     Route: 042
     Dates: start: 20180925, end: 20180927
  2. LEVOFLOXACIN. [Suspect]
     Active Substance: LEVOFLOXACIN
     Indication: RESPIRATORY TRACT INFECTION
     Dosage: 500 MG, EVERY 24 HOURS
     Route: 042
     Dates: start: 20180923, end: 20180927
  3. DEXKETOPROFEN TROMETAMOL [Suspect]
     Active Substance: DEXKETOPROFEN TROMETAMOL
     Dosage: 25 MG, BID
     Route: 048
     Dates: start: 20181002, end: 20181015
  4. DEXKETOPROFEN TROMETAMOL [Suspect]
     Active Substance: DEXKETOPROFEN TROMETAMOL
     Indication: ANALGESIC THERAPY
     Dosage: 50 MG, EVERY 8 HOURS
     Route: 042
     Dates: start: 20180928, end: 20181002
  5. PROPOFOL. [Suspect]
     Active Substance: PROPOFOL
     Indication: SEDATION
     Dosage: PERFUSION CONTI
     Route: 041
     Dates: start: 20180923, end: 20180925
  6. LINEZOLID. [Suspect]
     Active Substance: LINEZOLID
     Indication: RESPIRATORY TRACT INFECTION
     Dosage: 600 MG, EVERY 12 HOURS
     Route: 042
     Dates: start: 20180923, end: 20180926

REACTIONS (1)
  - Hyperamylasaemia [Recovered/Resolved]

NARRATIVE: CASE EVENT DATE: 20181001
